FAERS Safety Report 5976727-7 (Version None)
Quarter: 2008Q4

REPORT INFORMATION
  Report Type: 
  Country: None (occurrence: None)
  Receive Date: 20081201
  Receipt Date: 20081201
  Transmission Date: 20090506
  Serious: Yes (Other)
  Sender: FDA-Public Use
  Company Number: None

PATIENT
  Sex: Female
  Weight: 70.7611 kg

DRUGS (2)
  1. LEVOTHYROXINE SODIUM [Suspect]
     Indication: HYPOTHYROIDISM
     Dosage: 50 MCG ONCE DAILY PO
     Route: 048
     Dates: start: 20080709, end: 20080910
  2. SYNTHROID [Suspect]

REACTIONS (3)
  - EAR PRURITUS [None]
  - NASAL DISCOMFORT [None]
  - PRODUCT QUALITY ISSUE [None]
